FAERS Safety Report 5722574-0 (Version None)
Quarter: 2008Q2

REPORT INFORMATION
  Report Type: 
  Country: None (occurrence: None)
  Receive Date: 20080429
  Receipt Date: 20071115
  Transmission Date: 20081010
  Serious: No
  Sender: FDA-Public Use
  Company Number: US-ASTRAZENECA-2007UW26406

PATIENT
  Age: 16 Year
  Sex: Female
  Weight: 133.4 kg

DRUGS (2)
  1. NEXIUM [Suspect]
     Indication: GASTROOESOPHAGEAL REFLUX DISEASE
     Route: 048
     Dates: start: 20071001
  2. MERILAX [Concomitant]

REACTIONS (5)
  - EAR PAIN [None]
  - FLATULENCE [None]
  - HEADACHE [None]
  - PHARYNGOLARYNGEAL PAIN [None]
  - TONGUE DISCOLOURATION [None]
